FAERS Safety Report 6381746-5 (Version None)
Quarter: 2009Q3

REPORT INFORMATION
  Report Type: 
  Country: None (occurrence: None)
  Receive Date: 20090930
  Receipt Date: 20090922
  Transmission Date: 20100115
  Serious: Yes (Other)
  Sender: FDA-Public Use
  Company Number: CHPA2009US19137

PATIENT
  Age: 78 Year
  Sex: Female

DRUGS (4)
  1. VOLTAREN [Suspect]
     Indication: ARTHRALGIA
     Dosage: UNK, QD
     Route: 061
     Dates: start: 20090601
  2. VOLTAREN [Suspect]
     Indication: PAIN IN EXTREMITY
  3. VOLTAREN [Suspect]
     Indication: PAIN
  4. HUMULIN 70/30 [Concomitant]
     Indication: DIABETES MELLITUS
     Dosage: 3 SHOTS, QD

REACTIONS (2)
  - BLOOD GLUCOSE INCREASED [None]
  - WRONG TECHNIQUE IN DRUG USAGE PROCESS [None]
